FAERS Safety Report 18574139 (Version 1)
Quarter: 2020Q4

REPORT INFORMATION
  Report Type: Spontaneous
  Country: US (occurrence: US)
  Receive Date: 20201203
  Receipt Date: 20201203
  Transmission Date: 20210114
  Serious: No
  Sender: FDA-Public Use
  Company Number: US-MYLANLABS-2020M1097502

PATIENT
  Sex: Female

DRUGS (1)
  1. ESTRADIOL TRANSDERMAL SYSTEM [Suspect]
     Active Substance: ESTRADIOL
     Indication: MENOPAUSAL SYMPTOMS
     Dosage: 0.037 MILLIGRAM (ABOUT 3-4 MONTHS AGO)
     Route: 062

REACTIONS (3)
  - Malaise [Unknown]
  - Product use issue [Unknown]
  - Device difficult to use [Unknown]
